FAERS Safety Report 6864101-0 (Version None)
Quarter: 2010Q3

REPORT INFORMATION
  Report Type: 
  Country: None (occurrence: None)
  Receive Date: 20100721
  Receipt Date: 20080614
  Transmission Date: 20110219
  Serious: No
  Sender: FDA-Public Use
  Company Number: US-PFIZER INC-2008024229

PATIENT
  Sex: Female
  Weight: 108.86 kg

DRUGS (6)
  1. CHANTIX [Suspect]
     Indication: SMOKING CESSATION THERAPY
     Route: 048
     Dates: start: 20071203, end: 20080318
  2. VALSARTAN [Concomitant]
     Dates: start: 20050101
  3. SYNTHROID [Concomitant]
     Dates: start: 20050101
  4. HYDROCHLOROTHIAZIDE [Concomitant]
     Dates: start: 20050101
  5. LEVOTHYROXINE SODIUM [Concomitant]
     Dates: start: 20050101
  6. XANAX [Concomitant]
     Dates: start: 20050101

REACTIONS (5)
  - ARTHRALGIA [None]
  - DRUG DOSE OMISSION [None]
  - JOINT SWELLING [None]
  - OEDEMA PERIPHERAL [None]
  - PAIN IN EXTREMITY [None]
